FAERS Safety Report 7574588-6 (Version None)
Quarter: 2011Q2

REPORT INFORMATION
  Report Type: 
  Country: None (occurrence: None)
  Receive Date: 20110627
  Receipt Date: 20110606
  Transmission Date: 20111010
  Serious: Yes (Hospitalization)
  Sender: FDA-Public Use
  Company Number: JP-BAYER-201012915BYL

PATIENT
  Age: 71 Year
  Sex: Male

DRUGS (6)
  1. NEXAVAR [Suspect]
     Dosage: 400 MG, QD
     Route: 048
     Dates: start: 20100801, end: 20110415
  2. NEXAVAR [Suspect]
     Dosage: 600 MG, DAILY DOSE
     Dates: start: 20110101
  3. CISPLATIN [Concomitant]
     Dosage: DAILY DOSE 100 MG
     Route: 013
     Dates: start: 20090901
  4. NEXAVAR [Suspect]
     Indication: HEPATIC NEOPLASM MALIGNANT
     Dosage: 800 MG (DAILY DOSE), , ORAL
     Route: 048
     Dates: start: 20090911
  5. CISPLATIN [Concomitant]
     Dosage: DAILY DOSE 100 MG
     Route: 013
     Dates: start: 20091001
  6. NEXAVAR [Suspect]
     Dosage: 800 MG (DAILY DOSE), , ORAL
     Route: 048
     Dates: start: 20091101

REACTIONS (4)
  - SKIN DISORDER [None]
  - ACUTE MYOCARDIAL INFARCTION [None]
  - DIARRHOEA [None]
  - HEPATIC ENCEPHALOPATHY [None]
